FAERS Safety Report 10216878 (Version 1)
Quarter: 2014Q2

REPORT INFORMATION
  Report Type: Spontaneous
  Country: US (occurrence: US)
  Receive Date: 20140604
  Receipt Date: 20140604
  Transmission Date: 20141212
  Serious: Yes (Other)
  Sender: FDA-Public Use
  Company Number: US-ELI_LILLY_AND_COMPANY-US201405009333

PATIENT
  Age: 74 Year
  Sex: Female
  Weight: 71.66 kg

DRUGS (2)
  1. HUMALOG LISPRO [Suspect]
     Indication: PRODUCT USED FOR UNKNOWN INDICATION
     Route: 058
  2. LANTUS [Concomitant]

REACTIONS (3)
  - Cerebrovascular accident [Unknown]
  - Malaise [Unknown]
  - Blood glucose increased [Unknown]
